FAERS Safety Report 15255436 (Version 1)
Quarter: 2018Q4

REPORT INFORMATION
  Report Type: Spontaneous
  Country: US (occurrence: US)
  Receive Date: 20180808
  Receipt Date: 20180808
  Transmission Date: 20190204
  Serious: Yes (Hospitalization, Other)
  Sender: FDA-Public Use
  Company Number: US-SAKK-2018SA203844AA

PATIENT
  Sex: Male

DRUGS (26)
  1. PANTOPRAZOLE [Concomitant]
     Active Substance: PANTOPRAZOLE
  2. TOCILIZUMAB. [Suspect]
     Active Substance: TOCILIZUMAB
     Indication: RHEUMATOID ARTHRITIS
  3. TOCILIZUMAB. [Suspect]
     Active Substance: TOCILIZUMAB
     Indication: RHEUMATOID ARTHRITIS
  4. TOCILIZUMAB. [Suspect]
     Active Substance: TOCILIZUMAB
     Dosage: 162 MG, BID
     Route: 058
  5. PROLIA [Suspect]
     Active Substance: DENOSUMAB
     Indication: OSTEOPOROSIS
     Dosage: 60 MG, QM
     Dates: start: 201405
  6. TOCILIZUMAB. [Suspect]
     Active Substance: TOCILIZUMAB
     Indication: MYALGIA
     Dosage: 162 MG, QW
     Route: 058
     Dates: start: 201705, end: 20171025
  7. TOCILIZUMAB. [Suspect]
     Active Substance: TOCILIZUMAB
     Indication: VASCULITIS
  8. TOCILIZUMAB. [Suspect]
     Active Substance: TOCILIZUMAB
     Indication: RHEUMATOID ARTHRITIS
     Dosage: 162 MG, UNK
     Route: 058
  9. TOCILIZUMAB. [Suspect]
     Active Substance: TOCILIZUMAB
     Indication: MYALGIA
     Dosage: 162 MG, Q12D
     Route: 058
  10. FRAXIPARINE [Suspect]
     Active Substance: NADROPARIN CALCIUM
     Indication: VENOUS THROMBOSIS
     Dosage: UNK UNK, UNK
     Route: 065
  11. QUETIAPINE. [Suspect]
     Active Substance: QUETIAPINE
     Dosage: 25 MG, QD
     Route: 065
  12. TOCILIZUMAB. [Suspect]
     Active Substance: TOCILIZUMAB
     Indication: MYALGIA
     Dosage: UNK
     Dates: start: 20140601, end: 201506
  13. CLEXANE [Suspect]
     Active Substance: ENOXAPARIN SODIUM
     Indication: VENOUS THROMBOSIS
     Dosage: UNK UNK, UNK
     Route: 065
  14. TOCILIZUMAB. [Suspect]
     Active Substance: TOCILIZUMAB
     Indication: VASCULITIS
  15. TOCILIZUMAB. [Suspect]
     Active Substance: TOCILIZUMAB
     Indication: VASCULITIS
     Dosage: 162 MG
     Route: 058
  16. CORTISONE ACETATE. [Concomitant]
     Active Substance: CORTISONE ACETATE
  17. TOCILIZUMAB. [Suspect]
     Active Substance: TOCILIZUMAB
     Indication: RHEUMATOID ARTHRITIS
  18. NADROPARINE CALCIQUE SANOFIWINTHROP [Suspect]
     Active Substance: NADROPARIN CALCIUM
     Indication: VENOUS THROMBOSIS
     Dosage: UNK UNK, UNK
     Route: 065
  19. LISIHEXAL [Concomitant]
     Active Substance: LISINOPRIL
     Dosage: 162 MG, QW
  20. TOCILIZUMAB. [Suspect]
     Active Substance: TOCILIZUMAB
     Indication: VASCULITIS
  21. TOCILIZUMAB. [Suspect]
     Active Substance: TOCILIZUMAB
     Indication: MYALGIA
     Dosage: 162 MG, Q10D
     Route: 058
     Dates: start: 20180414
  22. LOVENOX [Suspect]
     Active Substance: ENOXAPARIN SODIUM
     Dosage: UNK
  23. TOCILIZUMAB. [Suspect]
     Active Substance: TOCILIZUMAB
     Indication: RHEUMATOID ARTHRITIS
  24. TOCILIZUMAB. [Suspect]
     Active Substance: TOCILIZUMAB
     Indication: VASCULITIS
  25. TOCILIZUMAB. [Suspect]
     Active Substance: TOCILIZUMAB
     Indication: MYALGIA
     Dosage: 162 MG, BID
     Route: 058
     Dates: start: 20150706
  26. COLECALCIFEROL [Suspect]
     Active Substance: CHOLECALCIFEROL
     Indication: OSTEOPOROSIS
     Dosage: 1000 IU
     Route: 048

REACTIONS (19)
  - Lymphocele [Recovered/Resolved]
  - Sepsis [Recovering/Resolving]
  - Depression [Not Recovered/Not Resolved]
  - Prostate cancer [Not Recovered/Not Resolved]
  - Hyperaesthesia [Unknown]
  - Venous thrombosis [Not Recovered/Not Resolved]
  - Dysuria [Unknown]
  - Inappropriate schedule of product administration [Unknown]
  - Erysipelas [Recovered/Resolved]
  - Platelet count decreased [Unknown]
  - Lymphoedema [Recovered/Resolved]
  - Impaired healing [Recovered/Resolved]
  - Wound healing normal [Unknown]
  - Sleep disorder [Unknown]
  - Suture rupture [Recovered/Resolved]
  - Rash erythematous [Unknown]
  - Autoimmune disorder [Unknown]
  - Off label use [Unknown]
  - Fall [Unknown]

NARRATIVE: CASE EVENT DATE: 201407
